FAERS Safety Report 6550008-5 (Version None)
Quarter: 2010Q1

REPORT INFORMATION
  Report Type: 
  Country: None (occurrence: None)
  Receive Date: 20100125
  Receipt Date: 20100120
  Transmission Date: 20100710
  Serious: Yes (Life-Threatening, Hospitalization)
  Sender: FDA-Public Use
  Company Number: CA-BRISTOL-MYERS SQUIBB COMPANY-14942403

PATIENT
  Age: 62 Year
  Sex: Male

DRUGS (4)
  1. ORENCIA [Suspect]
     Indication: RHEUMATOID ARTHRITIS
     Dosage: ORENCIA INFUSION DISCONTINED AS OF 22-OCT-2009.
     Route: 042
     Dates: start: 20090521, end: 20091022
  2. PREDNISONE TAB [Concomitant]
     Dates: start: 20081107
  3. METHOTREXATE [Concomitant]
     Dates: start: 20050101
  4. VOLTAREN [Concomitant]
     Dates: start: 20080101

REACTIONS (2)
  - ENCEPHALITIS VIRAL [None]
  - MOUTH ULCERATION [None]
